FAERS Safety Report 25214919 (Version 1)
Quarter: 2025Q2

REPORT INFORMATION
  Report Type: Spontaneous
  Country: US (occurrence: None)
  Receive Date: 20250418
  Receipt Date: 20250418
  Transmission Date: 20250717
  Serious: No
  Sender: FDA-CTU
  Company Number: None

PATIENT
  Age: 62 Year
  Sex: Female

DRUGS (1)
  1. DASATINIB [Suspect]
     Active Substance: DASATINIB
     Dosage: 50 MG DAILY ORAL
     Route: 048
     Dates: start: 20241029

REACTIONS (1)
  - Palpitations [None]

NARRATIVE: CASE EVENT DATE: 20250418
